FAERS Safety Report 5237917-4 (Version None)
Quarter: 2007Q1

REPORT INFORMATION
  Report Type: 
  Country: None (occurrence: None)
  Receive Date: 20070209
  Receipt Date: 20070124
  Transmission Date: 20070707
  Serious: Yes (Hospitalization, Other)
  Sender: FDA-Public Use
  Company Number: 8021223

PATIENT
  Age: 33 Year
  Sex: Female
  Weight: 47.5 kg

DRUGS (6)
  1. KEPPRA [Suspect]
     Indication: CONVULSION
     Dosage: 1000 MCG 2/D PO
     Route: 048
     Dates: start: 20061201, end: 20070110
  2. LAMICTAL [Suspect]
     Indication: CONVULSION
     Dosage: PO
     Route: 048
     Dates: start: 20061201, end: 20070110
  3. TYLENOL [Concomitant]
  4. VICODIN [Concomitant]
  5. BENADRYL [Concomitant]
  6. IMITREX [Concomitant]

REACTIONS (1)
  - TOXIC EPIDERMAL NECROLYSIS [None]
